FAERS Safety Report 9517221 (Version 1)
Quarter: 2013Q1

REPORT INFORMATION
  Report Type: Spontaneous
  Country: US (occurrence: None)
  Receive Date: 20130305
  Receipt Date: 20130305
  Transmission Date: 20140127
  Serious: Yes (Other)
  Sender: FDA-Public Use
  Company Number: 163-21880-12113570

PATIENT
  Age: 72 Year
  Sex: Male

DRUGS (11)
  1. REVLIMID [Suspect]
     Indication: PLASMA CELL MYELOMA
     Route: 048
     Dates: start: 20070424
  2. PROSCAR [Concomitant]
  3. SYNTHROID (LEVOTHYROXINE SODIUM) [Concomitant]
  4. GABAPENTIN [Concomitant]
  5. CASODEX (BICALUTAMIDE [Concomitant]
  6. ASPIRIN (ACETYLSALICYLIC ACID) [Concomitant]
  7. PERCOCET (OXYCOCET) [Concomitant]
  8. LUPORON (LEUPRORELIN ACETATE) [Concomitant]
  9. ZOMETA (ZOLEDRONIC ACID) [Concomitant]
  10. NOVOLOG (INSULIN ASPART) [Concomitant]
  11. CALCIUM [Concomitant]

REACTIONS (1)
  - Fatigue [None]
